FAERS Safety Report 7602571-0 (Version None)
Quarter: 2011Q3

REPORT INFORMATION
  Report Type: 
  Country: None (occurrence: None)
  Receive Date: 20110707
  Receipt Date: 20110525
  Transmission Date: 20111222
  Serious: Yes (Hospitalization, Other)
  Sender: FDA-Public Use
  Company Number: US-CYPR-2011-000020

PATIENT
  Sex: Female
  Weight: 88.905 kg

DRUGS (6)
  1. CYPHER STENT [Concomitant]
  2. CLOPIDOGREL [Suspect]
     Indication: ANTIPLATELET THERAPY
     Dosage: (75 MG QD ORAL)
     Route: 048
     Dates: start: 20110322, end: 20110519
  3. LANTUS [Concomitant]
  4. ASPIRIN [Suspect]
     Dosage: (162 MG QD ORAL) ; (325 MG QD, PT. WAS ON 325 MG DAILY AT THE TIME OF ENROLLMENT (20-APR-2010) ORAL)
     Route: 048
     Dates: start: 20110524
  5. ASPIRIN [Suspect]
     Dosage: (162 MG QD ORAL) ; (325 MG QD, PT. WAS ON 325 MG DAILY AT THE TIME OF ENROLLMENT (20-APR-2010) ORAL)
     Route: 048
     Dates: start: 20100101, end: 20110518
  6. HUMALOG [Concomitant]

REACTIONS (1)
  - CORONARY ARTERY DISEASE [None]
